FAERS Safety Report 6546685-5 (Version None)
Quarter: 2010Q1

REPORT INFORMATION
  Report Type: 
  Country: None (occurrence: None)
  Receive Date: 20100122
  Receipt Date: 20100111
  Transmission Date: 20100710
  Serious: Yes (Hospitalization)
  Sender: FDA-Public Use
  Company Number: US-PFIZER INC-2010008574

PATIENT
  Sex: Female

DRUGS (9)
  1. NORVASC [Suspect]
     Indication: HYPERTENSION
     Dosage: UNK
     Route: 048
     Dates: start: 20091201
  2. BENICAR HCT [Suspect]
     Indication: HYPERTENSION
     Dosage: 40/12.5 MG DAILY
     Route: 048
     Dates: start: 20030101, end: 20090101
  3. BENICAR HCT [Suspect]
     Dosage: 40/12.5 MG
     Route: 048
     Dates: start: 20091101, end: 20091201
  4. VALSARTAN [Suspect]
     Dosage: UNK
     Route: 048
     Dates: start: 20091201
  5. ACETYLSALICYLIC ACID [Concomitant]
  6. PROTONIX [Concomitant]
     Indication: GASTROOESOPHAGEAL REFLUX DISEASE
  7. ZOLPIDEM [Concomitant]
     Indication: INSOMNIA
     Dosage: 10 MG, 1X/DAY
     Dates: start: 20070101
  8. DIABETA [Concomitant]
     Indication: DIABETES MELLITUS
     Dosage: 5 MG, 2X/DAY
  9. LANTUS [Concomitant]
     Indication: DIABETES MELLITUS
     Dosage: 30 IU, 1X/DAY

REACTIONS (4)
  - BLOOD PRESSURE DECREASED [None]
  - BLOOD PRESSURE INCREASED [None]
  - CORONARY ARTERY OCCLUSION [None]
  - TRANSIENT ISCHAEMIC ATTACK [None]
